FAERS Safety Report 9969762 (Version 2)
Quarter: 2014Q2

REPORT INFORMATION
  Report Type: Spontaneous
  Country: FR (occurrence: FR)
  Receive Date: 20140306
  Receipt Date: 20140407
  Transmission Date: 20141212
  Serious: No
  Sender: FDA-Public Use
  Company Number: FR-JNJFOC-20140215229

PATIENT
  Sex: Male

DRUGS (1)
  1. DUROGESIC [Suspect]
     Indication: PAIN
     Route: 062

REACTIONS (4)
  - Inappropriate schedule of drug administration [Unknown]
  - Product quality issue [Unknown]
  - Drug ineffective [Unknown]
  - Product quality issue [Unknown]
